FAERS Safety Report 5060807-7 (Version None)
Quarter: 2006Q2

REPORT INFORMATION
  Report Type: 
  Country: None (occurrence: None)
  Receive Date: 20060630
  Receipt Date: 20050518
  Transmission Date: 20061013
  Serious: Yes (Death)
  Sender: FDA-Public Use
  Company Number: 405129

PATIENT
  Age: 76 Year
  Sex: Female

DRUGS (3)
  1. CELLCEPT [Suspect]
     Indication: PSORIASIS
     Dosage: 3 GRAM DAILY
     Dates: start: 20031215, end: 20050323
  2. PREDNISONE TAB [Concomitant]
  3. ENBREL [Concomitant]

REACTIONS (1)
  - DEATH [None]
